FAERS Safety Report 8866442 (Version 1)
Quarter: 2012Q4

REPORT INFORMATION
  Report Type: 
  Country: IT (occurrence: IT)
  Receive Date: 20121025
  Receipt Date: 20121025
  Transmission Date: 20130627
  Serious: Yes (Other)
  Sender: FDA-Public Use
  Company Number: IT-TEVA-365360ISR

PATIENT
  Age: 60 Year
  Sex: Male

DRUGS (5)
  1. OXALIPLATINO [Suspect]
     Dosage: 242 Milligram Daily;
     Route: 042
     Dates: start: 20120809, end: 20121011
  2. DESAMETASONE [Concomitant]
     Dosage: 8 Milligram Daily;
     Route: 041
  3. MAGNESIO SOLFATO [Concomitant]
     Dosage: 1000 Milligram Daily;
     Route: 042
  4. CALCIO GLUCONATO [Concomitant]
     Dosage: 1000 Milligram Daily;
     Route: 042
  5. ONDANSETRONE CLORIDRATO [Concomitant]
     Dosage: 8 Milligram Daily;
     Route: 042

REACTIONS (3)
  - Aphasia [Recovered/Resolved]
  - Dysaesthesia pharynx [Recovered/Resolved]
  - Infusion site reaction [None]
